FAERS Safety Report 16906559 (Version 3)
Quarter: 2020Q1

REPORT INFORMATION
  Report Type: Spontaneous
  Country: ES (occurrence: ES)
  Receive Date: 20191011
  Receipt Date: 20200113
  Transmission Date: 20200409
  Serious: Yes (Other)
  Sender: FDA-Public Use
  Company Number: ES-TEVA-2019-ES-1118057

PATIENT
  Age: 7 Month
  Sex: Male

DRUGS (1)
  1. OP2455 - OMEPRAZOL FORMULA MAGISTRAL [Suspect]
     Active Substance: OMEPRAZOLE
     Indication: GASTROOESOPHAGEAL REFLUX DISEASE
     Route: 065
     Dates: start: 20190731

REACTIONS (2)
  - Hyperhidrosis [Unknown]
  - Eczema [Unknown]

NARRATIVE: CASE EVENT DATE: 20190901
